FAERS Safety Report 19193515 (Version 2)
Quarter: 2021Q2

REPORT INFORMATION
  Report Type: Report from Study
  Country: None (occurrence: US)
  Receive Date: 20210428
  Receipt Date: 20210507
  Transmission Date: 20210717
  Serious: Yes (Hospitalization)
  Sender: FDA-Public Use
  Company Number: US-ABBVIE-21K-163-3875840-00

PATIENT
  Age: 81 Year
  Sex: Female
  Weight: 56.75 kg

DRUGS (3)
  1. COVID?19 VACCINE NOS. [Concomitant]
     Active Substance: COVID-19 VACCINE NOS
     Indication: COVID-19 IMMUNISATION
     Dosage: PFIZER DOSE 1
     Route: 030
     Dates: start: 20210321, end: 20210321
  2. HUMIRA [Suspect]
     Active Substance: ADALIMUMAB
     Indication: RHEUMATOID ARTHRITIS
     Route: 058
     Dates: start: 2018
  3. COVID?19 VACCINE NOS. [Concomitant]
     Active Substance: COVID-19 VACCINE NOS
     Dosage: PFIZER  DOSE 2
     Route: 030
     Dates: start: 20210411, end: 20210411

REACTIONS (4)
  - Feeling cold [Recovering/Resolving]
  - Escherichia infection [Recovering/Resolving]
  - Adverse food reaction [Recovering/Resolving]
  - Illness [Unknown]

NARRATIVE: CASE EVENT DATE: 202104
